FAERS Safety Report 14215127 (Version 1)
Quarter: 2017Q4

REPORT INFORMATION
  Report Type: Spontaneous
  Country: US (occurrence: US)
  Receive Date: 20171122
  Receipt Date: 20171122
  Transmission Date: 20180321
  Serious: No
  Sender: FDA-Public Use
  Company Number: US-JNJFOC-20170924075

PATIENT
  Sex: Female
  Weight: 69 kg

DRUGS (5)
  1. EMTRICITABINE [Concomitant]
     Active Substance: EMTRICITABINE
     Route: 065
  2. RITONAVIR. [Concomitant]
     Active Substance: RITONAVIR
     Indication: HIV INFECTION
     Route: 065
  3. TENOFOVIR [Concomitant]
     Active Substance: TENOFOVIR
     Route: 065
  4. DOLUTEGRAVIR [Concomitant]
     Active Substance: DOLUTEGRAVIR
     Route: 065
  5. PREZISTA [Suspect]
     Active Substance: DARUNAVIR ETHANOLATE
     Indication: HIV INFECTION
     Route: 048
     Dates: start: 2017

REACTIONS (3)
  - Product storage error [Not Recovered/Not Resolved]
  - Poor quality drug administered [Not Recovered/Not Resolved]
  - Drug level decreased [Unknown]

NARRATIVE: CASE EVENT DATE: 2017
